FAERS Safety Report 5781411-9 (Version None)
Quarter: 2008Q2

REPORT INFORMATION
  Report Type: 
  Country: None (occurrence: None)
  Receive Date: 20080623
  Receipt Date: 20070709
  Transmission Date: 20081010
  Serious: No
  Sender: FDA-Public Use
  Company Number: US-ASTRAZENECA-2007UW16071

PATIENT
  Age: 63 Year
  Sex: Female
  Weight: 54.4 kg

DRUGS (2)
  1. ENTOCORT EC [Suspect]
     Indication: COLITIS ULCERATIVE
     Route: 048
  2. SIMETHICONE [Concomitant]

REACTIONS (5)
  - ABDOMINAL DISTENSION [None]
  - ABDOMINAL PAIN [None]
  - DIARRHOEA [None]
  - FLATULENCE [None]
  - THERAPEUTIC RESPONSE UNEXPECTED [None]
